FAERS Safety Report 12544972 (Version 1)
Quarter: 2016Q3

REPORT INFORMATION
  Report Type: Spontaneous
  Country: US (occurrence: US)
  Receive Date: 20160711
  Receipt Date: 20160711
  Transmission Date: 20161109
  Serious: No
  Sender: FDA-Public Use
  Company Number: US-TEVA-672691USA

PATIENT
  Age: 46 Year
  Sex: Female
  Weight: 62.2 kg

DRUGS (2)
  1. NUVIGIL [Suspect]
     Active Substance: ARMODAFINIL
     Indication: HYPERSOMNIA
     Dosage: 150 MILLIGRAM DAILY;
     Dates: start: 20160606, end: 20160613
  2. NUVIGIL [Suspect]
     Active Substance: ARMODAFINIL
     Dosage: 125 MILLIGRAM DAILY;
     Dates: start: 20160613, end: 20160620

REACTIONS (4)
  - Feeling jittery [Recovered/Resolved]
  - Dyspepsia [Unknown]
  - Product use issue [Unknown]
  - Wrong technique in product usage process [Unknown]

NARRATIVE: CASE EVENT DATE: 20160606
